FAERS Safety Report 7598322-9 (Version None)
Quarter: 2011Q3

REPORT INFORMATION
  Report Type: 
  Country: None (occurrence: None)
  Receive Date: 20110708
  Receipt Date: 20110628
  Transmission Date: 20111222
  Serious: Yes (Other)
  Sender: FDA-Public Use
  Company Number: PHHY2011IT57129

PATIENT
  Sex: Male

DRUGS (1)
  1. AFINITOR [Suspect]
     Indication: RENAL CELL CARCINOMA
     Dosage: 10 MG, DAILY
     Dates: start: 20100709, end: 20110413

REACTIONS (6)
  - RASH [None]
  - SKIN EXFOLIATION [None]
  - ONYCHOLYSIS [None]
  - IRON DEFICIENCY ANAEMIA [None]
  - DRY SKIN [None]
  - CATARACT [None]
